FAERS Safety Report 7002107-1 (Version None)
Quarter: 2010Q3

REPORT INFORMATION
  Report Type: 
  Country: None (occurrence: None)
  Receive Date: 20100920
  Receipt Date: 20080205
  Transmission Date: 20110219
  Serious: Yes (Other)
  Sender: FDA-Public Use
  Company Number: US-ASTRAZENECA-2007UW10946

PATIENT
  Age: 11329 Day
  Sex: Female

DRUGS (7)
  1. SEROQUEL [Suspect]
     Indication: SLEEP DISORDER
     Route: 048
     Dates: start: 20030930, end: 20060430
  2. SEROQUEL [Suspect]
     Indication: BIPOLAR DISORDER
     Route: 048
     Dates: start: 20030930, end: 20060430
  3. SEROQUEL [Suspect]
     Dosage: 100-600 MG
     Route: 048
     Dates: start: 20050101, end: 20060101
  4. SEROQUEL [Suspect]
     Dosage: 100-600 MG
     Route: 048
     Dates: start: 20050101, end: 20060101
  5. ABILIFY [Concomitant]
     Dates: start: 20050101, end: 20050101
  6. LITHOBID [Concomitant]
     Dosage: 300-900 MG
     Dates: start: 20050101
  7. RISPERDAL [Concomitant]
     Dates: start: 20050101

REACTIONS (1)
  - PANCREATITIS ACUTE [None]
